FAERS Safety Report 9162041 (Version 2)
Quarter: 2017Q3

REPORT INFORMATION
  Report Type: Spontaneous
  Country: NL (occurrence: NL)
  Receive Date: 20130314
  Receipt Date: 20170720
  Transmission Date: 20171128
  Serious: Yes (Death, Hospitalization, Other)
  Sender: FDA-Public Use
  Company Number: NL-MERCK-1303NLD006481

PATIENT
  Age: 35 Year
  Sex: Female
  Weight: 55 kg

DRUGS (1)
  1. MARVELON [Suspect]
     Active Substance: DESOGESTREL\ETHINYL ESTRADIOL
     Indication: CONTRACEPTION
     Dosage: 1 TABLET (1 TIMES PER 1 CYCLICAL )
     Route: 048
     Dates: start: 2008

REACTIONS (2)
  - Pulmonary embolism [Fatal]
  - Pyelonephritis [Unknown]

NARRATIVE: CASE EVENT DATE: 20120717
